FAERS Safety Report 7908357-1 (Version None)
Quarter: 2011Q4

REPORT INFORMATION
  Report Type: 
  Country: None (occurrence: None)
  Receive Date: 20111111
  Receipt Date: 20111101
  Transmission Date: 20120403
  Serious: Yes (Hospitalization)
  Sender: FDA-Public Use
  Company Number: US-RANBAXY-2011US-50258

PATIENT
  Age: 36 Year
  Sex: Male

DRUGS (5)
  1. LISINOPRIL [Suspect]
     Indication: PRODUCT USED FOR UNKNOWN INDICATION
     Dosage: UNK, UNK
     Route: 048
  2. INSULIN [Suspect]
     Indication: CARDIOGENIC SHOCK
     Dosage: 70  IU BOLUS
     Route: 042
  3. INSULIN [Suspect]
     Dosage: 10-70 IU/HOUR
     Route: 042
  4. CARVEDILOL [Suspect]
     Indication: PRODUCT USED FOR UNKNOWN INDICATION
     Dosage: UNK, UNK
     Route: 048
  5. FUROSEMIDE [Suspect]
     Indication: PRODUCT USED FOR UNKNOWN INDICATION
     Dosage: UNK, UNK
     Route: 048

REACTIONS (4)
  - MULTIPLE DRUG OVERDOSE [None]
  - CARDIOGENIC SHOCK [None]
  - HYPOKALAEMIA [None]
  - HYPOGLYCAEMIA [None]
